FAERS Safety Report 4819100-7 (Version None)
Quarter: 2005Q4

REPORT INFORMATION
  Report Type: 
  Country: None (occurrence: None)
  Receive Date: 20051101
  Receipt Date: 20051101
  Transmission Date: 20060501
  Serious: No
  Sender: FDA-Public Use
  Company Number: None

PATIENT
  Age: 67 Year
  Sex: Male
  Weight: 103.6 kg

DRUGS (13)
  1. IRON DEXTRAN [Suspect]
     Indication: IRON DEFICIENCY ANAEMIA
     Dosage: 25MG/50CC IVS OVER 15 MIN (TEST DOSE)
     Route: 042
     Dates: start: 20050902
  2. DEXTROSE 50% INJ [Concomitant]
  3. FUROSEMIDE [Concomitant]
  4. NOVOLIN 70/30 [Concomitant]
  5. NOVOLIN R [Concomitant]
  6. LACTULOSE [Concomitant]
  7. MAGNESIUM OXIDE [Concomitant]
  8. OMEPRAZOLE [Concomitant]
  9. OXYCODONE [Concomitant]
  10. PIOGLITAZONE HCL [Concomitant]
  11. PROPRANOLOL [Concomitant]
  12. SILVER SULFADIAZINE [Concomitant]
  13. SPIRONOLACTONE [Concomitant]

REACTIONS (2)
  - CHEST PAIN [None]
  - INFUSION RELATED REACTION [None]
